FAERS Safety Report 5226827-4 (Version None)
Quarter: 2007Q1

REPORT INFORMATION
  Report Type: 
  Country: None (occurrence: None)
  Receive Date: 20070130
  Receipt Date: 20070127
  Transmission Date: 20070707
  Serious: Yes (Death)
  Sender: FDA-Public Use
  Company Number: 234074

PATIENT
  Age: 69 Year
  Sex: Male
  Weight: 63.5 kg

DRUGS (11)
  1. AVASTIN [Suspect]
     Indication: COLORECTAL CANCER METASTATIC
     Dosage: 480 MG, Q3W, INTRAVENOUS
     Route: 042
     Dates: start: 20061030
  2. CAPECITABINE (CAPECITABINE) [Suspect]
     Indication: COLORECTAL CANCER METASTATIC
     Dosage: 1650 MG, BID, ORAL
     Route: 048
     Dates: start: 20061030
  3. OXALIPLATIN [Suspect]
     Indication: COLORECTAL CANCER METASTATIC
     Dosage: 220 MG, Q3W, INTRAVENOUS
     Route: 042
     Dates: start: 20061030
  4. AMLODIPINE BESYLATE [Concomitant]
  5. LORAZEPAM [Concomitant]
  6. RANITIDINE [Concomitant]
  7. ONDANSETRON HCL [Concomitant]
  8. MAGNESIUM OXIDE (MAGNESIUM OXIDE) [Concomitant]
  9. NITROGLYCERIN [Concomitant]
  10. MEGESTROL ACETATE [Concomitant]
  11. DEXAMETHASONE TAB [Concomitant]

REACTIONS (2)
  - ANOREXIA [None]
  - CHEST PAIN [None]
